FAERS Safety Report 8197491-X (Version None)
Quarter: 2012Q1

REPORT INFORMATION
  Report Type: 
  Country: None (occurrence: None)
  Receive Date: 20120309
  Receipt Date: 20120306
  Transmission Date: 20120608
  Serious: Yes (Death)
  Sender: FDA-Public Use
  Company Number: JP-SANOFI-AVENTIS-2012SA007572

PATIENT
  Age: 79 Year
  Sex: Male

DRUGS (3)
  1. POLARAMINE [Concomitant]
     Dates: start: 20120123, end: 20120123
  2. TAXOTERE [Suspect]
     Indication: PROSTATE CANCER
     Dosage: FORM: INFUSION;97MG/BODY THROUGH VIAL
     Route: 065
     Dates: start: 20120123, end: 20120123
  3. PREDNISOLONE [Concomitant]
     Indication: PROSTATE CANCER
     Dates: start: 20120124, end: 20120127

REACTIONS (2)
  - PYREXIA [None]
  - LEUKOPENIA [None]
